FAERS Safety Report 5121551-0 (Version None)
Quarter: 2006Q4

REPORT INFORMATION
  Report Type: 
  Country: None (occurrence: None)
  Receive Date: 20061006
  Receipt Date: 20060727
  Transmission Date: 20070319
  Serious: Yes (Other)
  Sender: FDA-Public Use
  Company Number: PHBS2006JP11421

PATIENT
  Age: 47 Year
  Sex: Male

DRUGS (10)
  1. GLEEVEC [Suspect]
     Indication: CHRONIC MYELOID LEUKAEMIA
     Dosage: 400 MG/D
     Route: 048
     Dates: start: 20051130
  2. KERLONG [Concomitant]
     Indication: HYPERTENSION
     Dosage: 10 MG/DAY
     Route: 048
     Dates: start: 20031201, end: 20060710
  3. BLOPRESS [Concomitant]
     Indication: HYPERTENSION
     Dosage: 16 MG/DAY
     Route: 048
     Dates: start: 20031201
  4. ALLOPURINOL [Concomitant]
     Indication: HYPERURICAEMIA
     Route: 048
     Dates: start: 20031201
  5. BEZATOL - SLOW RELEASE [Concomitant]
     Indication: HYPERLIPIDAEMIA
     Dosage: 400 MG/D
     Route: 048
     Dates: start: 20031201, end: 20060910
  6. EPADEL [Concomitant]
     Indication: HYPERLIPIDAEMIA
     Dosage: 900 MG/D
     Route: 048
     Dates: start: 20031201, end: 20060710
  7. ALLOTOP-L [Concomitant]
     Indication: HYPERTENSION
     Dosage: 20 MG/D
     Route: 048
     Dates: start: 20060710
  8. PERSANTIN [Concomitant]
     Indication: RENAL DISORDER
     Dosage: 300 MG/D
     Route: 048
     Dates: start: 20060710
  9. LASIX [Concomitant]
     Indication: HYPERTENSION
     Dosage: 20 MG/D
     Route: 048
     Dates: start: 20060710
  10. KLARICID [Concomitant]
     Indication: BRONCHIECTASIS
     Dates: start: 20060904, end: 20060910

REACTIONS (10)
  - BRONCHIECTASIS [None]
  - CELL MARKER INCREASED [None]
  - CHEST PAIN [None]
  - COUGH [None]
  - EOSINOPHIL PERCENTAGE INCREASED [None]
  - RALES [None]
  - SENSORY DISTURBANCE [None]
  - STRIDOR [None]
  - THERAPY NON-RESPONDER [None]
  - WHITE BLOOD CELL COUNT DECREASED [None]
